FAERS Safety Report 9770282 (Version 1)
Quarter: 2013Q4

REPORT INFORMATION
  Report Type: Spontaneous
  Country: CH (occurrence: CH)
  Receive Date: 20131218
  Receipt Date: 20131218
  Transmission Date: 20140711
  Serious: Yes (Life-Threatening, Hospitalization, Other)
  Sender: FDA-Public Use
  Company Number: CH-ABBVIE-13P-151-1179561-00

PATIENT
  Age: 66 Year
  Sex: Male
  Weight: 67 kg

DRUGS (3)
  1. KALETRA 200/50 [Suspect]
     Indication: ASYMPTOMATIC HIV INFECTION
     Dosage: 200/50 MG
     Route: 048
     Dates: start: 200703
  2. TRUVADA [Suspect]
     Indication: ASYMPTOMATIC HIV INFECTION
     Dosage: 200/245 MG
     Route: 048
     Dates: start: 200703
  3. ADCETRIS [Suspect]
     Indication: NON-HODGKIN^S LYMPHOMA
     Route: 042
     Dates: start: 20131031, end: 20131031

REACTIONS (10)
  - Hyponatraemia [Not Recovered/Not Resolved]
  - Bicytopenia [Recovering/Resolving]
  - Anaemia [Not Recovered/Not Resolved]
  - Leukopenia [Recovered/Resolved]
  - Neutropenia [Recovering/Resolving]
  - Hypokalaemia [Recovering/Resolving]
  - Constipation [Recovering/Resolving]
  - Abdominal pain upper [Recovering/Resolving]
  - Chest pain [Recovering/Resolving]
  - Confusional state [Unknown]
